FAERS Safety Report 23083080 (Version 2)
Quarter: 2023Q4

REPORT INFORMATION
  Report Type: Spontaneous
  Country: GB (occurrence: GB)
  Receive Date: 20231019
  Receipt Date: 20231023
  Transmission Date: 20240110
  Serious: Yes (Other)
  Sender: FDA-Public Use
  Company Number: GB-MYLANLABS-2023M1100644

PATIENT
  Age: 31 Year
  Sex: Male

DRUGS (1)
  1. CLOZARIL [Suspect]
     Active Substance: CLOZAPINE
     Indication: Schizophrenia
     Dosage: UNK
     Route: 048
     Dates: start: 20230919

REACTIONS (5)
  - Myocarditis [Unknown]
  - Neutrophilia [Unknown]
  - Leukocytosis [Unknown]
  - Infection [Recovering/Resolving]
  - Eosinophilia [Unknown]

NARRATIVE: CASE EVENT DATE: 20230920
